FAERS Safety Report 7262128-0 (Version None)
Quarter: 2011Q1

REPORT INFORMATION
  Report Type: 
  Country: None (occurrence: None)
  Receive Date: 20110120
  Receipt Date: 20110106
  Transmission Date: 20110831
  Serious: Yes (Other)
  Sender: FDA-Public Use
  Company Number: JPI-P-013425

PATIENT
  Age: 50 Year
  Sex: Female

DRUGS (1)
  1. XYREM [Suspect]
     Indication: NARCOLEPSY
     Dosage: 4.5 MG (2.25 GM,2 IN 1 D), ORAL
     Route: 048
     Dates: start: 20080529

REACTIONS (5)
  - MUSCLE RUPTURE [None]
  - FALL [None]
  - ROTATOR CUFF SYNDROME [None]
  - PAIN [None]
  - LIGAMENT RUPTURE [None]
